FAERS Safety Report 5096503-X (Version None)
Quarter: 2006Q3

REPORT INFORMATION
  Report Type: 
  Country: None (occurrence: None)
  Receive Date: 20060830
  Receipt Date: 20060817
  Transmission Date: 20061208
  Serious: Yes (Hospitalization)
  Sender: FDA-Public Use
  Company Number: 224921

PATIENT
  Age: 29 Year
  Sex: Female

DRUGS (1)
  1. RAPTIVA [Suspect]
     Indication: PSORIASIS
     Dosage: 1 MG/KG, 1/WEEK , SUBCUTANEOUS
     Route: 058
     Dates: start: 20050801, end: 20051201

REACTIONS (7)
  - APLASIA PURE RED CELL [None]
  - DECREASED APPETITE [None]
  - FATIGUE [None]
  - LYMPHOPENIA [None]
  - NIGHT SWEATS [None]
  - PYREXIA [None]
  - URINE ANALYSIS ABNORMAL [None]
